FAERS Safety Report 9649275 (Version 1)
Quarter: 2013Q4

REPORT INFORMATION
  Report Type: Spontaneous
  Country: FR (occurrence: FR)
  Receive Date: 20131028
  Receipt Date: 20131028
  Transmission Date: 20140711
  Serious: Yes (Hospitalization)
  Sender: FDA-Public Use
  Company Number: FR-GLAXOSMITHKLINE-B0932294A

PATIENT
  Age: 84 Year
  Sex: Female

DRUGS (6)
  1. ARIXTRA [Suspect]
     Indication: THROMBOPHLEBITIS
     Route: 058
     Dates: start: 20130819, end: 20130826
  2. PRADAXA [Suspect]
     Indication: THROMBOPHLEBITIS
     Dosage: 110MG SEE DOSAGE TEXT
     Route: 048
     Dates: start: 20130827, end: 20130917
  3. SEROPLEX [Suspect]
     Indication: DEPRESSION
     Dosage: 1UNIT PER DAY
     Route: 048
  4. EBIXA [Concomitant]
  5. RAMIPRIL [Concomitant]
  6. DAFALGAN [Concomitant]

REACTIONS (9)
  - Gastric haemorrhage [Unknown]
  - Anaemia [Unknown]
  - Abdominal pain [Unknown]
  - Flatulence [Unknown]
  - Nephrolithiasis [Unknown]
  - Cholelithiasis [Unknown]
  - Haematemesis [Unknown]
  - Gastrointestinal haemorrhage [Unknown]
  - Inflammation [Unknown]
